FAERS Safety Report 9746726 (Version 1)
Quarter: 2013Q4

REPORT INFORMATION
  Report Type: Spontaneous
  Country: US (occurrence: US)
  Receive Date: 20131211
  Receipt Date: 20131211
  Transmission Date: 20140711
  Serious: No
  Sender: FDA-Public Use
  Company Number: US-BAYER-2013-151089

PATIENT
  Sex: Female

DRUGS (2)
  1. BAYER GENUINE ASPIRIN ORIGINAL STRENGTH [Suspect]
     Indication: ARTHRALGIA
     Dosage: 4 DF, BID
  2. ALEVE CAPLET [Suspect]
     Indication: ARTHRALGIA
     Dosage: 3 DF, BID

REACTIONS (1)
  - Extra dose administered [None]
